FAERS Safety Report 23111353 (Version 1)
Quarter: 2023Q4

REPORT INFORMATION
  Report Type: Spontaneous
  Country: US (occurrence: None)
  Receive Date: 20231025
  Receipt Date: 20231025
  Transmission Date: 20240110
  Serious: Yes (Hospitalization)
  Sender: FDA-Public Use
  Company Number: None

PATIENT
  Sex: Female

DRUGS (1)
  1. HUMIRA [Suspect]
     Active Substance: ADALIMUMAB
     Indication: Inflammatory bowel disease
     Dosage: OTHER FREQUENCY : EVERY7DAYS;?
     Route: 058
     Dates: start: 201508

REACTIONS (8)
  - Inflammatory bowel disease [None]
  - Condition aggravated [None]
  - COVID-19 [None]
  - Pneumonia [None]
  - Thrombosis [None]
  - Fungal infection [None]
  - Pneumothorax [None]
  - Pain [None]
